FAERS Safety Report 5637405-7 (Version None)
Quarter: 2008Q1

REPORT INFORMATION
  Report Type: 
  Country: None (occurrence: None)
  Receive Date: 20080225
  Receipt Date: 20080219
  Transmission Date: 20080703
  Serious: Yes (Hospitalization, Other)
  Sender: FDA-Public Use
  Company Number: AU-AVENTIS-200811604GDDC

PATIENT
  Age: 67 Year
  Sex: Female

DRUGS (2)
  1. LANTUS [Suspect]
     Route: 058
     Dates: start: 20060901
  2. AUTOPEN INSULIN INJECTION PEN [Suspect]

REACTIONS (2)
  - DYSPNOEA [None]
  - LOWER RESPIRATORY TRACT INFECTION [None]
